FAERS Safety Report 20772994 (Version 1)
Quarter: 2022Q2

REPORT INFORMATION
  Report Type: Report from Study
  Country: RO (occurrence: RO)
  Receive Date: 20220502
  Receipt Date: 20220502
  Transmission Date: 20220721
  Serious: Yes (Other)
  Sender: FDA-Public Use
  Company Number: RO-AMGEN-ROUSL2022016403

PATIENT
  Age: 54 Year
  Sex: Female

DRUGS (1)
  1. VECTIBIX [Suspect]
     Active Substance: PANITUMUMAB
     Indication: Product used for unknown indication
     Dosage: UNK
     Route: 065
     Dates: end: 202201

REACTIONS (8)
  - Haemorrhage [Unknown]
  - Pustule [Unknown]
  - Nail infection [Unknown]
  - Pain [Unknown]
  - Pruritus [Unknown]
  - Epistaxis [Unknown]
  - Localised infection [Unknown]
  - Adverse event [Unknown]
